FAERS Safety Report 13742442 (Version 2)
Quarter: 2017Q3

REPORT INFORMATION
  Report Type: Spontaneous
  Country: US (occurrence: US)
  Receive Date: 20170711
  Receipt Date: 20170726
  Transmission Date: 20171127
  Serious: No
  Sender: FDA-Public Use
  Company Number: US-TEVA-785758USA

PATIENT
  Sex: Female
  Weight: 59.93 kg

DRUGS (7)
  1. AMBIEN [Concomitant]
     Active Substance: ZOLPIDEM TARTRATE
     Dosage: 10 MILLIGRAM DAILY; AT NIGHT TIME
  2. LINZESS [Suspect]
     Active Substance: LINACLOTIDE
     Route: 065
  3. ACTIQ [Suspect]
     Active Substance: FENTANYL CITRATE
     Indication: SPINAL FRACTURE
  4. FIORICET [Concomitant]
     Active Substance: ACETAMINOPHEN\BUTALBITAL\CAFFEINE
     Dosage: 2 CAPSULES (500MG-300MG-40MG) THREE TIMES A DAY
  5. ELAVIL [Concomitant]
     Active Substance: AMITRIPTYLINE HYDROCHLORIDE
     Dosage: 50 MILLIGRAM DAILY; AT BEDTIME
  6. ACTIQ [Suspect]
     Active Substance: FENTANYL CITRATE
     Indication: PAIN
     Dosage: 1200 MICROGRAM DAILY;
     Route: 065
     Dates: start: 2009, end: 2014
  7. MORPHINE [Suspect]
     Active Substance: MORPHINE
     Route: 065

REACTIONS (15)
  - Loss of personal independence in daily activities [Unknown]
  - Impaired driving ability [Unknown]
  - Sleep disorder [Unknown]
  - Insomnia [Unknown]
  - Impaired quality of life [Unknown]
  - Decreased activity [Unknown]
  - Product use in unapproved indication [Unknown]
  - Fracture [Unknown]
  - Back disorder [Unknown]
  - Pain [Unknown]
  - Musculoskeletal disorder [Unknown]
  - Osteoporosis [Unknown]
  - Nuclear magnetic resonance imaging abnormal [Unknown]
  - Fluid retention [Unknown]
  - Irritable bowel syndrome [Unknown]

NARRATIVE: CASE EVENT DATE: 2009
